FAERS Safety Report 23026779 (Version 1)
Quarter: 2023Q4

REPORT INFORMATION
  Report Type: Spontaneous
  Country: FR (occurrence: None)
  Receive Date: 20231004
  Receipt Date: 20231004
  Transmission Date: 20240110
  Serious: Yes (Hospitalization)
  Sender: FDA-Public Use
  Company Number: FR-Orion Corporation ORION PHARMA-TREX2023-0209

PATIENT
  Age: 66 Year
  Sex: Male
  Weight: 80 kg

DRUGS (9)
  1. METHOTREXATE [Suspect]
     Active Substance: METHOTREXATE
     Indication: Scleritis
     Dates: start: 20230502, end: 20230512
  2. ELIQUIS [Concomitant]
     Active Substance: APIXABAN
  3. AMLODIPINE BESYLATE [Concomitant]
     Active Substance: AMLODIPINE BESYLATE
  4. PREDNISONE [Concomitant]
     Active Substance: PREDNISONE
  5. LAMOTRIGINE [Concomitant]
     Active Substance: LAMOTRIGINE
     Dosage: STRENGTH: 25 MG
  6. QUETIAPINE [Concomitant]
     Active Substance: QUETIAPINE
     Dosage: EVENING
  7. LORAZEPAM [Concomitant]
     Active Substance: LORAZEPAM
     Dosage: BEDTIME
  8. ALPRAZOLAM [Concomitant]
     Active Substance: ALPRAZOLAM
  9. FOLIC ACID [Concomitant]
     Active Substance: FOLIC ACID

REACTIONS (8)
  - Inappropriate schedule of product administration [Recovered/Resolved]
  - Mucosal inflammation [Recovering/Resolving]
  - Accidental overdose [Recovered/Resolved]
  - Pancytopenia [Recovering/Resolving]
  - Bronchitis [Recovering/Resolving]
  - Asthenia [Recovering/Resolving]
  - Diarrhoea [Recovering/Resolving]
  - Product use in unapproved indication [Unknown]

NARRATIVE: CASE EVENT DATE: 20230502
